FAERS Safety Report 17294688 (Version 1)
Quarter: 2020Q1

REPORT INFORMATION
  Report Type: Spontaneous
  Country: US (occurrence: US)
  Receive Date: 20200121
  Receipt Date: 20200121
  Transmission Date: 20200409
  Serious: No
  Sender: FDA-Public Use
  Company Number: US-PFIZER INC-2020024192

PATIENT
  Age: 47 Year
  Sex: Female
  Weight: 43 kg

DRUGS (1)
  1. IBRANCE [Suspect]
     Active Substance: PALBOCICLIB
     Indication: BREAST CANCER FEMALE
     Dosage: 125 MG, CYCLIC (DAILY; 21 OUT OF 28 DAYS)
     Route: 048
     Dates: start: 201901

REACTIONS (2)
  - Weight increased [Unknown]
  - Malaise [Unknown]
